FAERS Safety Report 8916073 (Version 1)
Quarter: 2012Q4

REPORT INFORMATION
  Report Type: 
  Country: FR (occurrence: FR)
  Receive Date: 20121119
  Receipt Date: 20121119
  Transmission Date: 20130627
  Serious: Yes (Hospitalization)
  Sender: FDA-Public Use
  Company Number: FR-BAYER-2012-119630

PATIENT
  Age: 28 Year
  Sex: Female

DRUGS (5)
  1. PRAZIQUANTEL [Suspect]
     Indication: SCHISTOSOMA MANSONI INFECTION
     Dosage: 40 mg/kg/day
  2. PRAZIQUANTEL [Suspect]
     Indication: SCHISTOSOMA MANSONI INFECTION
     Dosage: UNK
  3. ANTITHROMBOTIC AGENTS [Concomitant]
     Indication: ANTICOAGULANT THERAPY
  4. PREDNISONE [Concomitant]
     Dosage: 1 mg/kg/day
  5. PREDNISONE [Concomitant]
     Dosage: 20 mg/day

REACTIONS (1)
  - Vasculitis cerebral [Recovering/Resolving]
